FAERS Safety Report 12397763 (Version 1)
Quarter: 2016Q2

REPORT INFORMATION
  Report Type: Spontaneous
  Country: US (occurrence: None)
  Receive Date: 20160523
  Receipt Date: 20160523
  Transmission Date: 20160815
  Serious: Yes (Disabling)
  Sender: FDA-Public Use
  Company Number: None

PATIENT
  Age: 34 Year
  Sex: Female
  Weight: 68.95 kg

DRUGS (3)
  1. VITAMIN D [Concomitant]
     Active Substance: CHOLECALCIFEROL
  2. AFRIN [Suspect]
     Active Substance: OXYMETAZOLINE
     Indication: PULMONARY CONGESTION
     Dosage: 1 SPRAY(S) ONCE A DAY INHALATION
     Route: 055
     Dates: start: 20160520, end: 20160520
  3. PRENATSL VITAMIN [Concomitant]

REACTIONS (3)
  - Ageusia [None]
  - Anosmia [None]
  - Nasal discomfort [None]

NARRATIVE: CASE EVENT DATE: 20160520
